FAERS Safety Report 13817575 (Version 1)
Quarter: 2017Q3

REPORT INFORMATION
  Report Type: Spontaneous
  Country: FR (occurrence: FR)
  Receive Date: 20170731
  Receipt Date: 20170731
  Transmission Date: 20171127
  Serious: Yes (Hospitalization)
  Sender: FDA-Public Use
  Company Number: FR-TEVA-790668ROM

PATIENT
  Age: 57 Year
  Sex: Female

DRUGS (6)
  1. INEXIUM 20 MG [Concomitant]
     Active Substance: ESOMEPRAZOLE
     Dosage: 1 DOSAGE FORMS DAILY;
     Route: 048
     Dates: start: 20170127
  2. DOLIPRANE [Concomitant]
     Active Substance: ACETAMINOPHEN
     Indication: PROCEDURAL PAIN
     Route: 048
     Dates: start: 20170127, end: 20170206
  3. CACIT VITAMINE D3 500 MG/440 IU [Concomitant]
     Dosage: 1 DOSAGE FORMS DAILY;
     Route: 048
     Dates: start: 20170127
  4. LOVENOX [Concomitant]
     Active Substance: ENOXAPARIN SODIUM
     Indication: THROMBOSIS PROPHYLAXIS
     Dosage: 1 DOSAGE FORMS DAILY;
     Route: 058
     Dates: start: 20170127, end: 20170210
  5. TRAMADOL (CHLORHYDRATE) [Concomitant]
     Indication: PROCEDURAL PAIN
     Dates: start: 20170127, end: 20170210
  6. DELURSAN 250 MG [Suspect]
     Active Substance: URSODIOL
     Indication: PRODUCT USED FOR UNKNOWN INDICATION
     Dosage: 3 DOSAGE FORMS DAILY;
     Route: 048
     Dates: start: 20170127, end: 201704

REACTIONS (3)
  - Starvation [Recovered/Resolved]
  - Dehydration [Recovered/Resolved]
  - Nausea [Recovered/Resolved]

NARRATIVE: CASE EVENT DATE: 201702
